FAERS Safety Report 6917438-0 (Version None)
Quarter: 2010Q3

REPORT INFORMATION
  Report Type: 
  Country: None (occurrence: None)
  Receive Date: 20100810
  Receipt Date: 20100728
  Transmission Date: 20110219
  Serious: Yes (Other)
  Sender: FDA-Public Use
  Company Number: PHHY2010US47554

PATIENT
  Sex: Female

DRUGS (2)
  1. GLEEVEC [Suspect]
     Indication: CHRONIC MYELOID LEUKAEMIA
     Dosage: 400 MG, QD
     Route: 048
     Dates: start: 20100410
  2. GLEEVEC [Suspect]
     Dosage: 300 MG

REACTIONS (4)
  - FLUID RETENTION [None]
  - LIGAMENT RUPTURE [None]
  - NAUSEA [None]
  - OEDEMA PERIPHERAL [None]
